FAERS Safety Report 10563281 (Version 2)
Quarter: 2015Q1

REPORT INFORMATION
  Report Type: Spontaneous
  Country: US (occurrence: US)
  Receive Date: 20141104
  Receipt Date: 20150108
  Transmission Date: 20150720
  Serious: No
  Sender: FDA-Public Use
  Company Number: US-PFIZER INC-2014302734

PATIENT
  Age: 64 Year
  Sex: Male

DRUGS (6)
  1. IBUPROFEN. [Concomitant]
     Active Substance: IBUPROFEN
     Dosage: 200 MG, (2 TABLETS EVERY 2 TO 4 DAYS)
     Dates: start: 200403
  2. LYRICA [Suspect]
     Active Substance: PREGABALIN
     Indication: PAIN
     Dosage: 75 MG, DAILY (50 MG DAILY IN THE LATE EVENING + 25 MG IN THE MORNING)
     Dates: end: 20141019
  3. LIDOCAINE PATCH [Concomitant]
     Active Substance: LIDOCAINE
     Dosage: 5 %, (1 PATCH EVERY 3 TO 5 DAYS)
     Dates: start: 20140410
  4. LYRICA [Suspect]
     Active Substance: PREGABALIN
     Indication: INFLUENZA LIKE ILLNESS
     Dosage: 50 MG, UNK
     Dates: start: 20140918
  5. LYRICA [Suspect]
     Active Substance: PREGABALIN
     Dosage: 25 MG, UNK
     Dates: start: 20141027, end: 20141030
  6. LYRICA [Suspect]
     Active Substance: PREGABALIN
     Indication: FATIGUE
     Dosage: 50 MG, ALTERNATE DAY
     Dates: start: 20141024, end: 20141026

REACTIONS (1)
  - Vision blurred [Recovering/Resolving]

NARRATIVE: CASE EVENT DATE: 20141019
